FAERS Safety Report 7005576-6 (Version None)
Quarter: 2010Q3

REPORT INFORMATION
  Report Type: 
  Country: None (occurrence: None)
  Receive Date: 20100921
  Receipt Date: 20100915
  Transmission Date: 20110219
  Serious: Yes (Hospitalization)
  Sender: FDA-Public Use
  Company Number: A0844289A

PATIENT
  Age: 62 Year
  Sex: Male
  Weight: 84.1 kg

DRUGS (2)
  1. AVANDIA [Suspect]
     Dosage: 4MG TWICE PER DAY
     Route: 048
     Dates: start: 20000101, end: 20040601
  2. AVANDAMET [Suspect]
     Route: 048
     Dates: start: 20040729, end: 20050319

REACTIONS (1)
  - MYOCARDIAL INFARCTION [None]
